FAERS Safety Report 4745499-6 (Version None)
Quarter: 2005Q3

REPORT INFORMATION
  Report Type: 
  Country: None (occurrence: None)
  Receive Date: 20050812
  Receipt Date: 20050805
  Transmission Date: 20060218
  Serious: Yes (Hospitalization)
  Sender: FDA-Public Use
  Company Number: TPA2005A00755

PATIENT
  Age: 46 Year
  Sex: Female
  Weight: 90.9 kg

DRUGS (2)
  1. PIOGLITAZONE HCL [Suspect]
     Indication: GLUCOSE TOLERANCE IMPAIRED
     Dosage: UNK., 1 IN 1 D, PER ORAL
     Route: 048
     Dates: start: 20050410, end: 20050511
  2. FEOSOL           (FERROUS SULFATE) [Concomitant]

REACTIONS (10)
  - ABDOMINAL PAIN LOWER [None]
  - ANAEMIA POSTOPERATIVE [None]
  - HYSTERECTOMY [None]
  - LEUKOCYTOSIS [None]
  - MALAISE [None]
  - OVARIAN GERM CELL TERATOMA BENIGN [None]
  - OVARIAN NEOPLASM [None]
  - PELVIC PAIN [None]
  - PYREXIA [None]
  - TREATMENT NONCOMPLIANCE [None]
